FAERS Safety Report 19934851 (Version 1)
Quarter: 2021Q4

REPORT INFORMATION
  Report Type: Spontaneous
  Country: US (occurrence: US)
  Receive Date: 20211008
  Receipt Date: 20211008
  Transmission Date: 20220303
  Serious: Yes (Other)
  Sender: FDA-Public Use
  Company Number: US-NOVARTISPH-NVSC2021US228365

PATIENT
  Age: 66 Year
  Sex: Male

DRUGS (4)
  1. RANITIDINE [Suspect]
     Active Substance: RANITIDINE
     Indication: Abdominal pain
     Dosage: 150 MG, BID
     Route: 065
     Dates: end: 202011
  2. RANITIDINE [Suspect]
     Active Substance: RANITIDINE
     Indication: Nausea
  3. RANITIDINE [Suspect]
     Active Substance: RANITIDINE
     Indication: Abdominal pain
     Dosage: 150 MG, BID
     Route: 065
     Dates: end: 202011
  4. RANITIDINE [Suspect]
     Active Substance: RANITIDINE
     Indication: Nausea

REACTIONS (2)
  - Pancreatic carcinoma stage I [Recovering/Resolving]
  - Product use in unapproved indication [Unknown]

NARRATIVE: CASE EVENT DATE: 20190911
